FAERS Safety Report 4989646-X (Version None)
Quarter: 2006Q2

REPORT INFORMATION
  Report Type: 
  Country: None (occurrence: None)
  Receive Date: 20060426
  Receipt Date: 20060410
  Transmission Date: 20061013
  Serious: Yes (Life-Threatening)
  Sender: FDA-Public Use
  Company Number: US200604002155

PATIENT
  Age: 8 Year
  Sex: Female

DRUGS (1)
  1. STRATTERA [Suspect]
     Dosage: 10 MG DAILY (1/D)
     Dates: start: 20051201

REACTIONS (2)
  - CONTUSION [None]
  - PLATELET COUNT DECREASED [None]
